FAERS Safety Report 9608610 (Version 1)
Quarter: 2013Q4

REPORT INFORMATION
  Report Type: Spontaneous
  Country: US (occurrence: None)
  Receive Date: 20131007
  Receipt Date: 20131007
  Transmission Date: 20140711
  Serious: No
  Sender: FDA-Public Use
  Company Number: None

PATIENT
  Age: 57 Year
  Sex: Female

DRUGS (1)
  1. XELJANZ 5 MG PFIZER [Suspect]
     Route: 048
     Dates: start: 20130910

REACTIONS (1)
  - Chest discomfort [None]
